FAERS Safety Report 12503863 (Version 2)
Quarter: 2016Q3

REPORT INFORMATION
  Report Type: Spontaneous
  Country: PT (occurrence: PT)
  Receive Date: 20160628
  Receipt Date: 20160713
  Transmission Date: 20161109
  Serious: Yes (Other)
  Sender: FDA-Public Use
  Company Number: PT-PFIZER INC-2016308940

PATIENT
  Age: 45 Year
  Sex: Female

DRUGS (6)
  1. EUTIROX [Concomitant]
     Active Substance: LEVOTHYROXINE SODIUM
     Dosage: 175 UG, UNK
  2. EUTIROX [Concomitant]
     Active Substance: LEVOTHYROXINE SODIUM
     Dosage: 150 UG, UNK
  3. SUNITINIB MALATE. [Suspect]
     Active Substance: SUNITINIB MALATE
     Indication: CLEAR CELL RENAL CELL CARCINOMA
     Dosage: 50 MG, CYCLIC (DAILY, 4 WEEKS ON / 2 WEEKS OF )
     Route: 048
     Dates: start: 200701, end: 200901
  4. SUNITINIB MALATE. [Suspect]
     Active Substance: SUNITINIB MALATE
     Dosage: 37.5 MG, CYCLIC (DAILY, 4 WEEKS ON / 2 WEEKS OF )
     Route: 048
     Dates: start: 201106, end: 201401
  5. MALTOFER [Concomitant]
     Active Substance: IRON POLYMALTOSE
     Dosage: 375 MG / 5 ML
  6. SUNITINIB MALATE. [Suspect]
     Active Substance: SUNITINIB MALATE
     Dosage: 37.5 MG, CYCLIC (DAILY, 4 WEEKS ON / 2 WEEKS OF )
     Route: 048
     Dates: start: 201403, end: 201404

REACTIONS (14)
  - Gastrointestinal disorder [Recovered/Resolved]
  - Normochromic normocytic anaemia [Recovered/Resolved]
  - Anaemia [Recovered/Resolved]
  - Neutropenia [Recovered/Resolved]
  - Constipation [Recovered/Resolved]
  - Asthenia [Recovered/Resolved]
  - Ejection fraction decreased [Recovered/Resolved]
  - Skin ulcer [Recovered/Resolved]
  - Disease progression [Unknown]
  - Clear cell renal cell carcinoma [Unknown]
  - Intestinal perforation [Unknown]
  - Nausea [Recovered/Resolved]
  - Hypothyroidism [Recovered/Resolved]
  - Diarrhoea [Recovered/Resolved]

NARRATIVE: CASE EVENT DATE: 200702
